FAERS Safety Report 9714843 (Version 2)
Quarter: 2013Q4

REPORT INFORMATION
  Report Type: Spontaneous
  Country: JP (occurrence: None)
  Receive Date: 20131125
  Receipt Date: 20131216
  Transmission Date: 20140711
  Serious: Yes (Hospitalization)
  Sender: FDA-Public Use
  Company Number: JP-013729

PATIENT
  Age: 74 Year
  Sex: Male
  Weight: 50 kg

DRUGS (9)
  1. DEGARELIX [Suspect]
     Indication: PROSTATE CANCER
     Route: 058
     Dates: start: 20121227, end: 20121227
  2. VASOLAN [Concomitant]
  3. PRAZAXA [Concomitant]
  4. FLIVAS [Concomitant]
  5. EVIPROSTAT [Concomitant]
  6. CASODEX [Concomitant]
  7. SENNOSIDE [Concomitant]
  8. GASTER [Concomitant]
  9. MUCOSTA [Concomitant]

REACTIONS (3)
  - Intentional drug misuse [None]
  - Injection site cellulitis [None]
  - Pyrexia [None]
